FAERS Safety Report 9909596 (Version 2)
Quarter: 2014Q1

REPORT INFORMATION
  Report Type: Spontaneous
  Country: US (occurrence: US)
  Receive Date: 20140219
  Receipt Date: 20140317
  Transmission Date: 20141002
  Serious: No
  Sender: FDA-Public Use
  Company Number: US-BAYER-2014-025588

PATIENT
  Age: 72 Year
  Sex: Male
  Weight: 88.89 kg

DRUGS (4)
  1. LEVITRA [Suspect]
     Indication: ERECTILE DYSFUNCTION
     Dosage: UNK UNK, QD
     Route: 048
  2. CIALIS [Suspect]
     Dosage: 20 MG, UNK
     Route: 048
  3. ACIPHEX [Concomitant]
     Indication: GASTROOESOPHAGEAL REFLUX DISEASE
  4. PEPCID [Concomitant]
     Indication: GASTROOESOPHAGEAL REFLUX DISEASE

REACTIONS (6)
  - Diarrhoea [None]
  - Blood glucose increased [None]
  - Blood bilirubin increased [None]
  - Aspartate aminotransferase increased [None]
  - Red cell distribution width increased [None]
  - Platelet count decreased [None]
